FAERS Safety Report 11537674 (Version 2)
Quarter: 2016Q2

REPORT INFORMATION
  Report Type: Spontaneous
  Country: DE (occurrence: DE)
  Receive Date: 20150922
  Receipt Date: 20160425
  Transmission Date: 20160815
  Serious: Yes (Other)
  Sender: FDA-Public Use
  Company Number: GXKR2015DE004388

PATIENT

DRUGS (1)
  1. CEFTRIAXON HEXAL [Suspect]
     Active Substance: CEFTRIAXONE
     Indication: BORRELIA INFECTION
     Route: 042
     Dates: start: 201111

REACTIONS (1)
  - Deafness [Not Recovered/Not Resolved]

NARRATIVE: CASE EVENT DATE: 201212
